FAERS Safety Report 6916913-2 (Version None)
Quarter: 2010Q3

REPORT INFORMATION
  Report Type: 
  Country: None (occurrence: None)
  Receive Date: 20100810
  Receipt Date: 20100802
  Transmission Date: 20110219
  Serious: Yes (Death, Other)
  Sender: FDA-Public Use
  Company Number: GXKR2010IN08666

PATIENT
  Age: 35 Year
  Sex: Female
  Weight: 42 kg

DRUGS (7)
  1. ATRACURIUM BESILATE (NGX) [Suspect]
     Indication: TRISMUS
     Dosage: 25 MG, UNK
     Route: 042
  2. ROCURONIUM BROMIDE [Suspect]
     Indication: TRISMUS
     Dosage: 50 MG, UNK
     Route: 042
  3. NOREPINEPHRINE (NGX) [Suspect]
     Indication: POSITIVE CARDIAC INOTROPIC EFFECT
     Dosage: 0.05 UG/KG/MIN
  4. DOBUTAMINE HCL [Suspect]
     Indication: BLOOD PRESSURE DECREASED
     Dosage: 5 UG/KG/MIN
  5. VASOPRESSIN (NGX) [Suspect]
     Indication: BLOOD PRESSURE DECREASED
     Dosage: 6 U/H
  6. DOPAMINE HCL [Suspect]
     Indication: POSITIVE CARDIAC INOTROPIC EFFECT
     Dosage: 10 UG/KG/MIN
  7. EPINEPHRINE [Suspect]
     Indication: POSITIVE CARDIAC INOTROPIC EFFECT
     Dosage: 0.05 UG/KG/MIN

REACTIONS (7)
  - CARDIAC ARREST [None]
  - DRUG INEFFECTIVE [None]
  - LOW CARDIAC OUTPUT SYNDROME [None]
  - MUSCLE RIGIDITY [None]
  - RESUSCITATION [None]
  - TRISMUS [None]
  - VASOCONSTRICTION [None]
